FAERS Safety Report 17811178 (Version 1)
Quarter: 2020Q2

REPORT INFORMATION
  Report Type: Spontaneous
  Country: US (occurrence: US)
  Receive Date: 20200519
  Receipt Date: 20200519
  Transmission Date: 20200714
  Serious: Yes (Life-Threatening)
  Sender: FDA-Public Use
  Company Number: None

PATIENT

DRUGS (2)
  1. BENZONATATE. [Suspect]
     Active Substance: BENZONATATE
  2. SUCRALFATE. [Suspect]
     Active Substance: SUCRALFATE

REACTIONS (3)
  - Drug interaction [None]
  - Atrial fibrillation [None]
  - Oropharyngeal pain [None]

NARRATIVE: CASE EVENT DATE: 20200304
